FAERS Safety Report 11234278 (Version 5)
Quarter: 2015Q3

REPORT INFORMATION
  Report Type: Report from Study
  Country: US (occurrence: US)
  Receive Date: 20150702
  Receipt Date: 20150910
  Transmission Date: 20151125
  Serious: Yes (Hospitalization)
  Sender: FDA-Public Use
  Company Number: US-BIOGENIDEC-2015BI089740

PATIENT
  Age: 62 Year
  Sex: Male

DRUGS (1)
  1. TYSABRI [Suspect]
     Active Substance: NATALIZUMAB
     Indication: MULTIPLE SCLEROSIS
     Route: 042
     Dates: start: 20070913

REACTIONS (5)
  - Device related infection [Recovered/Resolved]
  - Urinary tract infection [Recovered/Resolved]
  - Infection [Unknown]
  - Immunosuppression [Unknown]
  - Bacterial sepsis [Recovered/Resolved]

NARRATIVE: CASE EVENT DATE: 2015
